FAERS Safety Report 14627150 (Version 14)
Quarter: 2018Q3

REPORT INFORMATION
  Report Type: Report from Study
  Country: US (occurrence: US)
  Receive Date: 20180312
  Receipt Date: 20180912
  Transmission Date: 20181010
  Serious: Yes (Other)
  Sender: FDA-Public Use
  Company Number: US-MALLINCKRODT-T201800958

PATIENT
  Age: 65 Year
  Sex: Female
  Weight: 75 kg

DRUGS (10)
  1. REPOSITORY CORTICOTROPIN INJECTION [Suspect]
     Active Substance: CORTICOTROPIN
     Indication: SARCOIDOSIS
     Dosage: 80 UNITS / 1 ML, 2 TIMES PER WEEK
     Route: 058
     Dates: start: 20180223, end: 2018
  2. METOPROLOL TARTRATE. [Concomitant]
     Active Substance: METOPROLOL TARTRATE
     Indication: BLOOD PRESSURE ABNORMAL
     Dosage: 25 MG, ONE TABLET THREE TIMES A DAY
     Route: 065
  3. REPOSITORY CORTICOTROPIN INJECTION [Suspect]
     Active Substance: CORTICOTROPIN
     Dosage: 40 UNITS / .5 ML 1 TIME WEEKLY SUNDAYS
     Route: 058
     Dates: start: 20180626, end: 2018
  4. SODIUM BICARBONATE. [Concomitant]
     Active Substance: SODIUM BICARBONATE
     Indication: PRODUCT USED FOR UNKNOWN INDICATION
     Dosage: UNK
     Route: 065
  5. REPOSITORY CORTICOTROPIN INJECTION [Suspect]
     Active Substance: CORTICOTROPIN
     Dosage: 40 UNITS, EVERY TWO WEEKS
     Route: 065
     Dates: start: 20180318, end: 2018
  6. LOSARTAN. [Concomitant]
     Active Substance: LOSARTAN
     Indication: HYPERTENSION
     Dosage: 50 MG TWO TABLETS A DAY
     Route: 065
  7. FAMOTIDINE. [Concomitant]
     Active Substance: FAMOTIDINE
     Indication: ABDOMINAL DISCOMFORT
     Dosage: 40 MG, TWO TABLETS ONCE A DAY
     Route: 065
  8. REPOSITORY CORTICOTROPIN INJECTION [Suspect]
     Active Substance: CORTICOTROPIN
     Dosage: 80 UNITS / 1 ML, EVERY TWO WEEKS ON SUNDAY(EVERY OTHER SUNDAY)
     Route: 058
     Dates: start: 20180318, end: 2018
  9. FLUTICASONE. [Concomitant]
     Active Substance: FLUTICASONE
     Indication: PRODUCT USED FOR UNKNOWN INDICATION
     Dosage: AS NEEDED
     Route: 065
  10. REPOSITORY CORTICOTROPIN INJECTION [Suspect]
     Active Substance: CORTICOTROPIN
     Dosage: 80 UNITS / 1 ML, EVERY TWO WEEKS
     Route: 058
     Dates: start: 20180730

REACTIONS (33)
  - Nausea [Not Recovered/Not Resolved]
  - Dyspnoea [Not Recovered/Not Resolved]
  - Palpitations [Not Recovered/Not Resolved]
  - Ear infection [Unknown]
  - Hypotension [Unknown]
  - Weight increased [Not Recovered/Not Resolved]
  - Abdominal pain upper [Not Recovered/Not Resolved]
  - Angiotensin converting enzyme increased [Unknown]
  - Migraine [Not Recovered/Not Resolved]
  - Fluid retention [Not Recovered/Not Resolved]
  - Emotional distress [Recovered/Resolved]
  - Constipation [Unknown]
  - Drug dose omission [Unknown]
  - Blood pressure increased [Recovering/Resolving]
  - Balance disorder [Recovered/Resolved]
  - Abdominal discomfort [Not Recovered/Not Resolved]
  - Chest pain [Not Recovered/Not Resolved]
  - Insomnia [Not Recovered/Not Resolved]
  - Nasopharyngitis [Not Recovered/Not Resolved]
  - Impaired driving ability [Not Recovered/Not Resolved]
  - Granuloma [Not Recovered/Not Resolved]
  - Dry eye [Recovering/Resolving]
  - Panic attack [Unknown]
  - Dizziness [Not Recovered/Not Resolved]
  - Blood potassium increased [Unknown]
  - Visual impairment [Not Recovered/Not Resolved]
  - Dysgeusia [Not Recovered/Not Resolved]
  - Heart rate increased [Not Recovered/Not Resolved]
  - Ear pain [Unknown]
  - Headache [Recovered/Resolved]
  - Viral pharyngitis [Unknown]
  - Flatulence [Unknown]
  - Malaise [Unknown]

NARRATIVE: CASE EVENT DATE: 2018
